FAERS Safety Report 23165560 (Version 1)
Quarter: 2023Q4

REPORT INFORMATION
  Report Type: Spontaneous
  Country: US (occurrence: US)
  Receive Date: 20231109
  Receipt Date: 20231109
  Transmission Date: 20240110
  Serious: No
  Sender: FDA-Public Use
  Company Number: US-ANIPHARMA-2023-US-024092

PATIENT
  Age: 37 Year
  Sex: Female

DRUGS (1)
  1. CORTICOTROPIN [Suspect]
     Active Substance: CORTICOTROPIN
     Indication: Nephrotic syndrome
     Dosage: 40 UNITS SUBCUTANEOUSLY EVERY 72 HOURS
     Route: 058
     Dates: start: 20230622, end: 20230803

REACTIONS (3)
  - Fluid retention [Unknown]
  - Weight increased [Unknown]
  - Glomerular filtration rate decreased [Unknown]
